FAERS Safety Report 4653829-9 (Version None)
Quarter: 2005Q2

REPORT INFORMATION
  Report Type: 
  Country: None (occurrence: None)
  Receive Date: 20050504
  Receipt Date: 20050427
  Transmission Date: 20051028
  Serious: Yes (Hospitalization)
  Sender: FDA-Public Use
  Company Number: 2005BI007231

PATIENT
  Age: 52 Year
  Sex: Female
  Weight: 68.0396 kg

DRUGS (1)
  1. AVONEX [Suspect]
     Indication: MULTIPLE SCLEROSIS
     Dosage: 30 UG; QW; IM
     Route: 030
     Dates: start: 20010512, end: 20010901

REACTIONS (12)
  - ALOPECIA [None]
  - ANXIETY [None]
  - DIZZINESS [None]
  - EYE HAEMORRHAGE [None]
  - FALL [None]
  - FATIGUE [None]
  - MEMORY IMPAIRMENT [None]
  - SEXUAL ASSAULT VICTIM [None]
  - STRESS [None]
  - TOOTH LOSS [None]
  - VISUAL ACUITY REDUCED [None]
  - WALKING AID USER [None]
